FAERS Safety Report 6728489-3 (Version None)
Quarter: 2010Q2

REPORT INFORMATION
  Report Type: 
  Country: None (occurrence: None)
  Receive Date: 20100517
  Receipt Date: 20100511
  Transmission Date: 20101027
  Serious: Yes (Other)
  Sender: FDA-Public Use
  Company Number: US-PFIZER INC-2010035467

PATIENT
  Sex: Female
  Weight: 32.205 kg

DRUGS (11)
  1. SOLU-MEDROL [Suspect]
     Indication: HYPERSENSITIVITY
     Dosage: 60 MG, UNK
     Route: 042
     Dates: start: 20091201
  2. SEMPREX-D [Concomitant]
     Indication: HYPERSENSITIVITY
     Dosage: TWO TO FOUR CAPSULES DAILY
     Route: 048
  3. LOESTRIN FE 1/20 [Concomitant]
     Dosage: UNK
     Route: 048
  4. THYROID TAB [Concomitant]
     Dosage: 45 MG, UNK
     Route: 048
  5. MAXALT [Concomitant]
     Indication: MIGRAINE
     Dosage: AS NEEDED
     Route: 048
  6. CELEXA [Concomitant]
     Dosage: 20 MG, UNK
     Route: 048
  7. PREVACID [Concomitant]
     Dosage: 30 MG, UNK
     Route: 048
  8. AMBIEN [Concomitant]
     Indication: SLEEP DISORDER
     Dosage: 10 MG, DAILY, OFF AND ON
     Route: 048
  9. CODEINE [Concomitant]
     Dosage: AS NEEDED
  10. XANAX [Concomitant]
     Indication: GASTROINTESTINAL DISORDER
     Dosage: 5 MG, UNK
     Route: 048
  11. CYPROHEPTADINE [Concomitant]
     Dosage: 20 TO 40 MG
     Route: 048

REACTIONS (18)
  - ABDOMINAL DISCOMFORT [None]
  - ACNE [None]
  - ANGER [None]
  - ANXIETY DISORDER [None]
  - ARTHRALGIA [None]
  - DEPRESSION [None]
  - EUPHORIC MOOD [None]
  - FATIGUE [None]
  - HUNGER [None]
  - INSOMNIA [None]
  - MENSTRUATION IRREGULAR [None]
  - MIGRAINE [None]
  - MOOD SWINGS [None]
  - NAUSEA [None]
  - OEDEMA PERIPHERAL [None]
  - PRURITUS [None]
  - SURGERY [None]
  - WEIGHT INCREASED [None]
